FAERS Safety Report 8344746-1 (Version None)
Quarter: 2012Q2

REPORT INFORMATION
  Report Type: 
  Country: None (occurrence: None)
  Receive Date: 20120402
  Receipt Date: 20111017
  Transmission Date: 20120825
  Serious: Yes (Other)
  Sender: FDA-Public Use
  Company Number: 302942USA

PATIENT
  Age: 68 Year
  Sex: Female

DRUGS (1)
  1. ALENDRONIC ACID [Suspect]
     Indication: OSTEOPENIA
     Dosage: 10 MG (70 MG,1 IN 1 WK)
     Dates: start: 20090413, end: 20101001

REACTIONS (2)
  - OSTEONECROSIS OF JAW [None]
  - OSTEOMYELITIS [None]
